FAERS Safety Report 17912371 (Version 1)
Quarter: 2020Q2

REPORT INFORMATION
  Report Type: Spontaneous
  Country: US (occurrence: US)
  Receive Date: 20200618
  Receipt Date: 20200618
  Transmission Date: 20200714
  Serious: Yes (Hospitalization)
  Sender: FDA-Public Use
  Company Number: None

PATIENT
  Sex: Male

DRUGS (22)
  1. ATIVAN [Concomitant]
     Active Substance: LORAZEPAM
  2. CELEXA [Concomitant]
     Active Substance: CITALOPRAM HYDROBROMIDE
  3. CYCLOBENZAPRINE. [Concomitant]
     Active Substance: CYCLOBENZAPRINE
  4. NORCO [Concomitant]
     Active Substance: ACETAMINOPHEN\HYDROCODONE BITARTRATE
  5. PANTOPRAZOLE [Concomitant]
     Active Substance: PANTOPRAZOLE
  6. RAMIPRIL. [Concomitant]
     Active Substance: RAMIPRIL
  7. TASIGNA [Suspect]
     Active Substance: NILOTINIB
     Indication: ACUTE LYMPHOCYTIC LEUKAEMIA
     Dosage: ?          OTHER FREQUENCY:EVERY 12 HOURS;?
     Route: 048
     Dates: start: 20190328
  8. AMITRIPTYLIN [Concomitant]
     Active Substance: AMITRIPTYLINE
  9. LEVOFLOXACIN. [Concomitant]
     Active Substance: LEVOFLOXACIN
  10. MONTELUKAST [Concomitant]
     Active Substance: MONTELUKAST SODIUM
  11. PRASUGREL. [Concomitant]
     Active Substance: PRASUGREL
  12. CALACYCLOVIR [Concomitant]
  13. HYDROCORTISONE. [Concomitant]
     Active Substance: HYDROCORTISONE
  14. VFEND [Concomitant]
     Active Substance: VORICONAZOLE
  15. VITAMIN B1 [Concomitant]
     Active Substance: THIAMINE HYDROCHLORIDE
  16. ISOSORB MONO [Concomitant]
     Active Substance: ISOSORBIDE MONONITRATE
  17. POTASSIUM [Concomitant]
     Active Substance: POTASSIUM
  18. SPRYCEL [Concomitant]
     Active Substance: DASATINIB
  19. TRAMADOL. [Concomitant]
     Active Substance: TRAMADOL
  20. ATORVASTATIN [Concomitant]
     Active Substance: ATORVASTATIN
  21. ADVAIR DISKUS [Concomitant]
     Active Substance: FLUTICASONE PROPIONATE\SALMETEROL XINAFOATE
  22. METOPROLOL. [Concomitant]
     Active Substance: METOPROLOL

REACTIONS (1)
  - Lung disorder [None]
